FAERS Safety Report 17075622 (Version 1)
Quarter: 2019Q4

REPORT INFORMATION
  Report Type: Spontaneous
  Country: FR (occurrence: FR)
  Receive Date: 20191126
  Receipt Date: 20191126
  Transmission Date: 20200122
  Serious: Yes (Death, Other)
  Sender: FDA-Public Use
  Company Number: FR-PFIZER INC-2019504566

PATIENT
  Age: 31 Year
  Sex: Female

DRUGS (7)
  1. ZOPICLONE [Suspect]
     Active Substance: ZOPICLONE
     Dosage: UNK (UNSPECIFIED)
     Route: 048
     Dates: start: 20180725, end: 20180725
  2. VENTOLINE [SALBUTAMOL] [Concomitant]
     Active Substance: ALBUTEROL SULFATE
     Dosage: UNK
  3. SERTRALINE [Suspect]
     Active Substance: SERTRALINE HYDROCHLORIDE
     Dosage: UNK (UNSPECIFIED)
     Route: 048
     Dates: start: 20180725, end: 20180725
  4. LORMETAZEPAM [Concomitant]
     Active Substance: LORMETAZEPAM
     Dosage: UNK
  5. DAFLON [BIOFLAVONOIDS;DIOSMIN;HESPERIDIN] [Concomitant]
     Active Substance: BIOFLAVONOIDS\DIOSMIN\HESPERIDIN
     Dosage: UNK
  6. TERCIAN [CYAMEMAZINE TARTRATE] [Suspect]
     Active Substance: CYAMEMAZINE
     Dosage: UNK (UNSPECIFIED)
     Route: 048
     Dates: start: 20180725, end: 20180725
  7. DIAZEPAM. [Suspect]
     Active Substance: DIAZEPAM
     Dosage: UNK (UNSPECIFIED)
     Route: 048
     Dates: start: 20180725, end: 20180725

REACTIONS (1)
  - Respiratory depression [Fatal]

NARRATIVE: CASE EVENT DATE: 20180725
